APPROVED DRUG PRODUCT: ABACAVIR SULFATE AND LAMIVUDINE
Active Ingredient: ABACAVIR SULFATE; LAMIVUDINE
Strength: EQ 600MG BASE;300MG
Dosage Form/Route: TABLET;ORAL
Application: A216332 | Product #001 | TE Code: AB
Applicant: LAURUS LABS LTD
Approved: Jul 25, 2022 | RLD: No | RS: No | Type: RX